FAERS Safety Report 12175254 (Version 3)
Quarter: 2016Q2

REPORT INFORMATION
  Report Type: Other
  Country: US (occurrence: US)
  Receive Date: 20160314
  Receipt Date: 20160602
  Transmission Date: 20160815
  Serious: Yes (Death, Hospitalization)
  Sender: FDA-Public Use
  Company Number: US-ACORDA-ACO_121999_2016

PATIENT
  Sex: Male
  Weight: 71.2 kg

DRUGS (30)
  1. GABAPENTIN. [Concomitant]
     Active Substance: GABAPENTIN
     Indication: PRODUCT USED FOR UNKNOWN INDICATION
     Dosage: 300 MG, AT LUNCH ON ADHC DAYS
     Route: 048
     Dates: start: 20160201
  2. VITAMIN D3 [Concomitant]
     Active Substance: CHOLECALCIFEROL
     Indication: SUPPLEMENTATION THERAPY
     Dosage: 1000 IU, QD
     Route: 048
     Dates: start: 20151014
  3. CYCLOBENZAPRINE [Concomitant]
     Active Substance: CYCLOBENZAPRINE
     Indication: MUSCLE SPASMS
     Dosage: 10 MG 2 TIMES PER DAY, MID-DAY, AND QHS
     Route: 048
     Dates: start: 20151221
  4. CYMBALTA [Concomitant]
     Active Substance: DULOXETINE HYDROCHLORIDE
     Indication: PRODUCT USED FOR UNKNOWN INDICATION
     Dosage: 60 MG, 2 CAPSULES AT HS
     Route: 048
     Dates: start: 20160126
  5. ENSURE [Concomitant]
     Active Substance: AMINO ACIDS\DEXTROSE\ELECTROLYTES NOS\SOYBEAN OIL\VITAMINS
     Indication: PRODUCT USED FOR UNKNOWN INDICATION
     Dosage: 240 ML, TID
     Route: 048
  6. CARBAMAZEPINE. [Concomitant]
     Active Substance: CARBAMAZEPINE
     Indication: TRIGEMINAL NEURALGIA
     Dosage: 400 MG, AT NOON ON ADHC DAYS
     Route: 048
     Dates: start: 20160125
  7. LIDODERM [Concomitant]
     Active Substance: LIDOCAINE
     Indication: PRODUCT USED FOR UNKNOWN INDICATION
     Dosage: APPLY 1 PATCH QD TO PAINFUL AREA
     Route: 062
     Dates: start: 20160127
  8. LEVOFLOXACIN. [Concomitant]
     Active Substance: LEVOFLOXACIN
     Indication: PRODUCT USED FOR UNKNOWN INDICATION
     Dosage: 500 MG, QD FOR 7 DAYS
     Route: 048
     Dates: start: 20160128
  9. AMPYRA [Suspect]
     Active Substance: DALFAMPRIDINE
     Indication: MULTIPLE SCLEROSIS
     Dosage: 10 MG, BID
     Route: 048
     Dates: start: 20150518
  10. CARBAMAZEPINE. [Concomitant]
     Active Substance: CARBAMAZEPINE
     Dosage: 400 MG, Q 8 HRS
     Route: 048
     Dates: start: 20160126
  11. OXYCODONE AND ACETAMINOPHEN [Concomitant]
     Active Substance: ACETAMINOPHEN\OXYCODONE HYDROCHLORIDE
     Indication: PAIN
     Dosage: 10-325 MG, 1 TAB Q 4 HRS PRN
     Route: 048
     Dates: start: 20160212
  12. GILENYA [Concomitant]
     Active Substance: FINGOLIMOD HYDROCHLORIDE
     Indication: PRODUCT USED FOR UNKNOWN INDICATION
     Dosage: UNK
     Route: 065
  13. GABAPENTIN. [Concomitant]
     Active Substance: GABAPENTIN
     Dosage: 300 MG, 1 CAPSULE IN THE MORNING AND AT MIDDAY AND TWO CAPSULES AT HS
     Route: 048
     Dates: start: 20160212
  14. ANALGESIC CREAM [Concomitant]
     Indication: PAIN
     Dosage: MASSAGE INTO PAINFUL AREA UNTIL ABSORBED INTO SKIN, REPEAT IF NEEDED
     Route: 061
     Dates: start: 20151014
  15. HYDROCORTISONE. [Concomitant]
     Active Substance: HYDROCORTISONE
     Indication: PRODUCT USED FOR UNKNOWN INDICATION
     Dosage: APPLY TO AFFECTED AREA BY TOPICAL ROUTE
     Route: 061
     Dates: start: 20151014
  16. ZINC OXIDE. [Concomitant]
     Active Substance: ZINC OXIDE
     Indication: PRODUCT USED FOR UNKNOWN INDICATION
     Dosage: 20 %, BID PRN, APPLY TO ARMPITS
     Route: 061
     Dates: start: 20151014
  17. AQUAPHOR [Concomitant]
     Active Substance: PETROLATUM
     Indication: DRY SKIN
     Dosage: APPLY TO LEGS, FACE, ARMS, FEET UNTIL DRYNESS IMPROVED
     Route: 061
     Dates: start: 20151014
  18. TRAZODONE HYDROCHLORIDE. [Concomitant]
     Active Substance: TRAZODONE HYDROCHLORIDE
     Indication: NEUROPATHY PERIPHERAL
     Dosage: 50 MG, QD, AT 7PM
     Route: 048
     Dates: start: 20160212
  19. ZINC [Concomitant]
     Active Substance: ZINC\ZINC CHLORIDE
     Indication: UPPER RESPIRATORY TRACT INFECTION
     Dosage: 50 MG, QD
     Route: 048
     Dates: start: 20151014
  20. OXYGEN. [Concomitant]
     Active Substance: OXYGEN
     Indication: PRODUCT USED FOR UNKNOWN INDICATION
     Dosage: 2 L, HS
     Route: 045
     Dates: start: 20151014
  21. ASCORBIC ACID. [Concomitant]
     Active Substance: ASCORBIC ACID
     Indication: NASOPHARYNGITIS
     Dosage: 500 MG, 2 TABLETS BY MOUTH ONCE DAILY
     Route: 048
     Dates: start: 20151014
  22. LIQUID BANDAGE [Concomitant]
     Indication: SKIN WOUND
     Dosage: UNK
     Route: 065
     Dates: start: 20151014
  23. FOLIC ACID. [Concomitant]
     Active Substance: FOLIC ACID
     Indication: MULTIPLE SCLEROSIS
     Dosage: 1 MG, QD
     Route: 048
     Dates: start: 20160212
  24. PREVIDENT 5000 PLUS [Concomitant]
     Indication: PRODUCT USED FOR UNKNOWN INDICATION
     Dosage: 1.1 %, BRUSH WITH PEA-SIZED AMT TWICE DAILY FOR 2 MINS, SPIT OUT EXCESS
     Route: 065
     Dates: start: 20151014
  25. TRAZODONE HYDROCHLORIDE. [Concomitant]
     Active Substance: TRAZODONE HYDROCHLORIDE
     Indication: INSOMNIA
  26. ANTACID [Concomitant]
     Active Substance: ALUMINUM HYDROXIDE\CALCIUM CARBONATE\DIMETHICONE\MAGNESIUM HYDROXIDE
     Indication: ABDOMINAL DISCOMFORT
     Dosage: 200-200-20MG/5ML; 2 TEASPOONFULS BETWEEN MEALS AND AT BEDTIME AS NEEDED
     Route: 048
     Dates: start: 20151014
  27. BACLOFEN. [Concomitant]
     Active Substance: BACLOFEN
     Indication: MUSCLE SPASMS
     Dosage: 20 MG, IN THE MORNING AND AT DINNER
     Route: 048
     Dates: start: 20160212
  28. COUMADIN [Concomitant]
     Active Substance: WARFARIN SODIUM
     Indication: PRODUCT USED FOR UNKNOWN INDICATION
     Dosage: 5 MG, ON MONDAYS
     Route: 048
     Dates: start: 20160209
  29. COUMADIN [Concomitant]
     Active Substance: WARFARIN SODIUM
     Dosage: 7.5 MG, QD, EXCEPT MONDAYS
     Route: 048
     Dates: start: 20160209
  30. LIDOCAINE. [Concomitant]
     Active Substance: LIDOCAINE
     Indication: PRODUCT USED FOR UNKNOWN INDICATION
     Dosage: 5 %, TID
     Route: 061
     Dates: start: 20151014

REACTIONS (6)
  - Pneumonia aspiration [Fatal]
  - Multiple sclerosis [Fatal]
  - Catheter management [Unknown]
  - Urinary tract infection [Fatal]
  - Muscle spasms [Unknown]
  - Sepsis [Fatal]
